FAERS Safety Report 25062360 (Version 1)
Quarter: 2025Q1

REPORT INFORMATION
  Report Type: Spontaneous
  Country: US (occurrence: US)
  Receive Date: 20250311
  Receipt Date: 20250311
  Transmission Date: 20250409
  Serious: Yes (Hospitalization, Other)
  Sender: PROCTER AND GAMBLE
  Company Number: US-PROCTER+GAMBLE-PH24002832

PATIENT
  Sex: Female
  Weight: 74.4 kg

DRUGS (31)
  1. NERVIVE PAIN RELIEVING CREAM [Suspect]
     Active Substance: LIDOCAINE\MENTHOL
     Indication: Neuropathy peripheral
     Dosage: JUST ENOUGH TO COVER LEG (RIGHT CALF), 1 ONLY
     Route: 061
     Dates: start: 20240325, end: 20240325
  2. FLONASE [Concomitant]
     Active Substance: FLUTICASONE PROPIONATE
     Dates: start: 20200506
  3. FLONASE [Concomitant]
     Active Substance: FLUTICASONE PROPIONATE
     Dosage: 2 SPRAY, DAILY (2 SPRAYS (100 MCG TOTAL) BY EACH NARE ROUTE DAILY)
     Dates: start: 20210726, end: 20240409
  4. ELIQUIS [Concomitant]
     Active Substance: APIXABAN
     Dosage: 2.5 MILLIGRAM, 2 /DAY
     Route: 048
     Dates: start: 20201231
  5. ELIQUIS [Concomitant]
     Active Substance: APIXABAN
     Dosage: 1 TABLET, 2 /DAY
     Route: 048
     Dates: start: 20230915, end: 20240409
  6. ELIQUIS [Concomitant]
     Active Substance: APIXABAN
     Dosage: 1 TABLET, 2 /DAY (TAKE 1 TABLET (2.5 MG TOTAL) BY MOUTH 2 TIMES A DAY)
     Dates: start: 20210324, end: 20210625
  7. ELIQUIS [Concomitant]
     Active Substance: APIXABAN
     Dosage: 2.5 MILLIGRAM, 2 /DAY BEFORE LUNCH AND DINNER
     Route: 048
     Dates: start: 20240417
  8. BREO ELLIPTA [Concomitant]
     Active Substance: FLUTICASONE FUROATE\VILANTEROL TRIFENATATE
     Dates: start: 20201231, end: 20240409
  9. BREO ELLIPTA [Concomitant]
     Active Substance: FLUTICASONE FUROATE\VILANTEROL TRIFENATATE
     Dates: start: 20191107, end: 20211118
  10. VOLTAREN [Concomitant]
     Active Substance: DICLOFENAC SODIUM
  11. VOLTAREN [Concomitant]
     Active Substance: DICLOFENAC SODIUM
     Dosage: 2 /DAY (APPLY TO AFFECTED AREA TWICE A DAY); DICLOFENAC (VOLTAREN) 1 % GEL
     Route: 061
     Dates: start: 20210111, end: 20240409
  12. VOLTAREN [Concomitant]
     Active Substance: DICLOFENAC SODIUM
     Route: 061
     Dates: start: 20210527, end: 20210625
  13. SINGULAIR [Concomitant]
     Active Substance: MONTELUKAST SODIUM
     Dosage: 1 TABLET, 1 /DAY (NIGHTLY), 10 MG TABLET
     Route: 048
     Dates: start: 20220815, end: 20240417
  14. DOXEPIN [Concomitant]
     Active Substance: DOXEPIN
     Dates: start: 20221205
  15. LINZESS [Concomitant]
     Active Substance: LINACLOTIDE
     Dosage: 1 CAPSUL, DAILY
     Route: 048
     Dates: start: 20231005
  16. LINZESS [Concomitant]
     Active Substance: LINACLOTIDE
     Dosage: 72 MICROGRAM, DAILY
     Route: 048
  17. AZOR [Concomitant]
     Active Substance: AMLODIPINE BESYLATE\OLMESARTAN MEDOXOMIL
     Dosage: 1 TABLET, DAILY (TAKE 1 TABLET POQ DAY)
     Route: 048
     Dates: start: 20231213
  18. PROTONIX [Concomitant]
     Active Substance: PANTOPRAZOLE SODIUM
     Dosage: 1 TABLET, DAILY (1 TABLET BY MOUTH DAILY BEFORE BREAKFAST), PANTOPRAZOLE DR (PROTONIX) 40 MG TABLET
     Route: 048
     Dates: start: 20240105
  19. PROTONIX [Concomitant]
     Active Substance: PANTOPRAZOLE SODIUM
     Dosage: 20 MILLIGRAM, DAILY
     Route: 048
  20. DOSTINEX [Concomitant]
     Active Substance: CABERGOLINE
     Indication: Blood prolactin increased
     Dosage: 1 TABLET (0.5 MG), 2 /WEEK
     Route: 048
     Dates: start: 20240202
  21. DOSTINEX [Concomitant]
     Active Substance: CABERGOLINE
     Dosage: 0.25 MILLIGRAM, 2 /WEEK (MONDAY + FRIDAY)
     Route: 048
     Dates: start: 20240417
  22. DOSTINEX [Concomitant]
     Active Substance: CABERGOLINE
     Dates: start: 20201231, end: 20230919
  23. LIDODERM [Concomitant]
     Active Substance: LIDOCAINE
     Dates: end: 20240416
  24. VITAMIN C [Concomitant]
     Active Substance: ASCORBIC ACID
     Route: 048
     Dates: end: 20240409
  25. FERROUS SULFATE [Concomitant]
     Active Substance: FERROUS SULFATE
     Dosage: 1 TABLET, DAILY (1 TABLET (325 MG TOTAL) BY MOUTH DAILY WITH BREAKFAST)
     Route: 048
  26. SILVADENE [Concomitant]
     Active Substance: SILVER SULFADIAZINE
     Dosage: (SILVADENE)1 % CREAM HYDROCORTISONE, PERIANAL, 2.5 %RECTAL CREAM INSERT 2 TIMES DAILY AS NEEDED RECT
     Route: 061
  27. NUCYNTA [Concomitant]
     Active Substance: TAPENTADOL HYDROCHLORIDE
     Dosage: 150 MILLIGRAM, 2 /DAY
     Route: 048
  28. LIPITOR [Concomitant]
     Active Substance: ATORVASTATIN CALCIUM
     Dosage: 20 MILLIGRAM, DAILY BY MOUTH
     Route: 048
  29. VITAMIN D [Concomitant]
     Active Substance: VITAMIN D NOS
     Route: 048
  30. LYRICA [Concomitant]
     Active Substance: PREGABALIN
     Dosage: 300 MILLIGRAM, 2 /DAY
     Route: 048
  31. LYRICA [Concomitant]
     Active Substance: PREGABALIN
     Dates: start: 20210111, end: 20210210

REACTIONS (40)
  - Sepsis [Recovered/Resolved]
  - Skin ulcer [Recovered/Resolved]
  - Wound infection [Recovered/Resolved]
  - Cellulitis [Recovered/Resolved]
  - Second degree chemical burn of skin [Recovered/Resolved]
  - Wound necrosis [Recovered/Resolved]
  - Muscle necrosis [Recovered/Resolved]
  - Application site pain [Recovering/Resolving]
  - Skin burning sensation [Recovering/Resolving]
  - Body mass index increased [Unknown]
  - Blood pressure systolic increased [Unknown]
  - Blood pressure diastolic increased [Unknown]
  - Blood creatinine decreased [Unknown]
  - Red cell distribution width increased [Unknown]
  - Blood glucose increased [Unknown]
  - Carbon dioxide increased [Unknown]
  - Haematocrit decreased [Unknown]
  - Immature granulocyte percentage increased [Unknown]
  - Activated partial thromboplastin time prolonged [Unknown]
  - Heart rate decreased [Unknown]
  - Hypernatraemia [Unknown]
  - Protein total decreased [Unknown]
  - Leukopenia [Recovering/Resolving]
  - Hyperchloraemia [Recovering/Resolving]
  - Dermatitis [Recovered/Resolved]
  - Mean cell haemoglobin concentration decreased [Unknown]
  - Neutrophil count decreased [Unknown]
  - Skin lesion [Recovered/Resolved]
  - Hypoaesthesia [Recovering/Resolving]
  - Muscle hypertrophy [Recovering/Resolving]
  - Peripheral swelling [Recovered/Resolved]
  - Limb injury [Recovered/Resolved]
  - Blister [Recovered/Resolved]
  - Pain in extremity [Recovering/Resolving]
  - Furuncle [Recovered/Resolved]
  - Mobility decreased [Recovering/Resolving]
  - Stasis dermatitis [Unknown]
  - Peripheral venous disease [Unknown]
  - Lymphoedema [Recovering/Resolving]
  - Venous hypertension [Recovering/Resolving]

NARRATIVE: CASE EVENT DATE: 20240101
